FAERS Safety Report 8943369 (Version 3)
Quarter: 2013Q2

REPORT INFORMATION
  Report Type: Report from Study
  Country: JP (occurrence: JP)
  Receive Date: 20121204
  Receipt Date: 20130530
  Transmission Date: 20140414
  Serious: Yes (Other)
  Sender: FDA-Public Use
  Company Number: JP-VERTEX PHARMACEUTICALS INC.-2012-025469

PATIENT
  Age: 69 Year
  Sex: Male

DRUGS (18)
  1. VX-950 (TELAPREVIR) [Suspect]
     Indication: CHRONIC HEPATITIS C
     Dosage: 1500 MG, QD
     Route: 048
     Dates: start: 20120828, end: 20121128
  2. RIBAVIRIN [Suspect]
     Indication: CHRONIC HEPATITIS C
     Dosage: 600 MG, QD
     Route: 048
     Dates: start: 20120828, end: 20121211
  3. RIBAVIRIN [Suspect]
     Dosage: 400 MG, QD
     Route: 048
     Dates: start: 20121212, end: 20130129
  4. RIBAVIRIN [Suspect]
     Dosage: 600 MG, QD
     Route: 048
     Dates: start: 20130130, end: 20130213
  5. PEGINTERFERON ALFA-2B [Suspect]
     Indication: CHRONIC HEPATITIS C
     Dosage: 1.5 ?G/KG, QW
     Route: 058
     Dates: start: 20120828, end: 20120912
  6. PEGINTERFERON ALFA-2B [Suspect]
     Dosage: 1.2 ?G/KG, QW
     Route: 058
     Dates: start: 20120919, end: 20121003
  7. PEGINTERFERON ALFA-2B [Suspect]
     Dosage: 1 ?G/KG, QW
     Route: 058
     Dates: end: 20121024
  8. PEGINTERFERON ALFA-2B [Suspect]
     Dosage: 0.8 ?G/KG, QW
     Route: 058
     Dates: start: 20121031, end: 20121114
  9. PEGINTERFERON ALFA-2B [Suspect]
     Dosage: 0.6 ?G/KG, QW
     Route: 058
     Dates: start: 20121121, end: 20121121
  10. PEGINTERFERON ALFA-2B [Suspect]
     Dosage: 0.8 ?G/KG, QW
     Route: 058
     Dates: start: 20121128, end: 20121212
  11. PEGINTERFERON ALFA-2B [Suspect]
     Dosage: 0.6 ?G/KG, QW
     Route: 058
     Dates: start: 20121219, end: 20130213
  12. LANSOPRAZOLE [Concomitant]
     Dosage: 15 MG, QD
     Route: 048
  13. POLAPREZINC [Concomitant]
     Dosage: 150 MG, QD
     Route: 048
  14. SALOBEL [Concomitant]
     Dosage: 100 MG, QD
     Route: 048
  15. LIVALO [Concomitant]
     Dosage: 2 MG, QD
     Route: 048
  16. EPADEL [Concomitant]
     Dosage: 1800 MG, QD
     Route: 048
  17. FEROTYM [Concomitant]
     Dosage: 100 MG, QD
     Route: 048
  18. CLARITIN REDITABS [Concomitant]
     Dosage: 10 MG, QD
     Route: 048

REACTIONS (6)
  - Anaemia [Not Recovered/Not Resolved]
  - Anaemia [Not Recovered/Not Resolved]
  - Anaemia [Not Recovered/Not Resolved]
  - Enterocolitis bacterial [Recovered/Resolved]
  - Neutrophil count decreased [Not Recovered/Not Resolved]
  - Neutrophil count decreased [Not Recovered/Not Resolved]
